FAERS Safety Report 16855854 (Version 1)
Quarter: 2019Q3

REPORT INFORMATION
  Report Type: Report from Study
  Country: None (occurrence: CO)
  Receive Date: 20190926
  Receipt Date: 20190926
  Transmission Date: 20191005
  Serious: Yes (Other)
  Sender: FDA-Public Use
  Company Number: CO-ABBVIE-19K-036-2870664-00

PATIENT
  Sex: Male
  Weight: 83 kg

DRUGS (5)
  1. AMLODIPINE [Concomitant]
     Active Substance: AMLODIPINE BESYLATE
     Indication: IGA NEPHROPATHY
     Route: 048
     Dates: start: 201907
  2. HUMIRA [Suspect]
     Active Substance: ADALIMUMAB
     Indication: ANKYLOSING SPONDYLITIS
     Route: 058
     Dates: start: 20130313
  3. LOSARTAN. [Concomitant]
     Active Substance: LOSARTAN
     Indication: IGA NEPHROPATHY
     Route: 048
     Dates: start: 201907
  4. HUMIRA [Suspect]
     Active Substance: ADALIMUMAB
     Indication: ANKYLOSING SPONDYLITIS
     Route: 058
     Dates: end: 20190620
  5. ENALAPRIL [Concomitant]
     Active Substance: ENALAPRIL
     Indication: IGA NEPHROPATHY
     Route: 048
     Dates: start: 201907

REACTIONS (2)
  - Respiratory distress [Recovering/Resolving]
  - Dyspnoea [Not Recovered/Not Resolved]

NARRATIVE: CASE EVENT DATE: 2017
